FAERS Safety Report 14180130 (Version 2)
Quarter: 2017Q4

REPORT INFORMATION
  Report Type: Spontaneous
  Country: FR (occurrence: FR)
  Receive Date: 20171110
  Receipt Date: 20171128
  Transmission Date: 20180321
  Serious: Yes (Other)
  Sender: FDA-Public Use
  Company Number: FR-TEVA-824155ROM

PATIENT
  Age: 64 Year
  Sex: Female

DRUGS (3)
  1. COPAXONE [Suspect]
     Active Substance: GLATIRAMER ACETATE
     Dosage: COPAXONE 40 MG/ML
     Route: 065
     Dates: start: 20170807
  2. XATRAL 2.5 MG [Concomitant]
     Dosage: 5 MILLIGRAM DAILY;
     Route: 065
  3. FAMPYRA 10 MG [Concomitant]
     Dosage: 20 MILLIGRAM DAILY;
     Route: 065

REACTIONS (11)
  - Somnolence [Unknown]
  - Tremor [Recovered/Resolved]
  - Pain in extremity [Unknown]
  - Fatigue [Not Recovered/Not Resolved]
  - Pallor [Unknown]
  - Loss of consciousness [Recovered/Resolved]
  - Salivary hypersecretion [Unknown]
  - Back pain [Unknown]
  - Malaise [Recovered/Resolved]
  - Erythema [Unknown]
  - Urinary incontinence [Unknown]

NARRATIVE: CASE EVENT DATE: 20171030
